FAERS Safety Report 7572323-9 (Version None)
Quarter: 2011Q2

REPORT INFORMATION
  Report Type: 
  Country: None (occurrence: None)
  Receive Date: 20110624
  Receipt Date: 20081008
  Transmission Date: 20111010
  Serious: Yes (Hospitalization, Other)
  Sender: FDA-Public Use
  Company Number: CA-GENENTECH-320452

PATIENT
  Sex: Male
  Weight: 80.7 kg

DRUGS (2)
  1. XOLAIR [Suspect]
     Indication: ASTHMA
     Dosage: 150 UNK, UNK
     Route: 058
     Dates: start: 20060215
  2. ANTIHYPERTENSIVE NOS [Concomitant]
     Indication: HYPERTENSION

REACTIONS (1)
  - ALLERGY TO PLANTS [None]
